FAERS Safety Report 13589195 (Version 1)
Quarter: 2017Q2

REPORT INFORMATION
  Report Type: Spontaneous
  Country: US (occurrence: US)
  Receive Date: 20170529
  Receipt Date: 20170529
  Transmission Date: 20170830
  Serious: Yes (Death, Other)
  Sender: FDA-Public Use
  Company Number: US-STRIDES ARCOLAB LIMITED-2016SP018600

PATIENT

DRUGS (4)
  1. NEVIRAPINE. [Suspect]
     Active Substance: NEVIRAPINE
     Dosage: 200 MG, BID
  2. LAMIVUDINE. [Concomitant]
     Active Substance: LAMIVUDINE
     Indication: HEPATITIS C
     Dosage: UNK
  3. NEVIRAPINE. [Suspect]
     Active Substance: NEVIRAPINE
     Indication: HEPATITIS C
     Dosage: 200 MG, DAILY
  4. ZIDOVUDINE. [Concomitant]
     Active Substance: ZIDOVUDINE
     Indication: HEPATITIS C
     Dosage: UNK

REACTIONS (9)
  - Drug-induced liver injury [Unknown]
  - Ascites [Unknown]
  - Ocular icterus [Unknown]
  - Influenza like illness [Unknown]
  - Drug eruption [Unknown]
  - Encephalopathy [Unknown]
  - Toxicity to various agents [Unknown]
  - Dermatitis exfoliative [Unknown]
  - Hepatotoxicity [Fatal]
